FAERS Safety Report 8367036-X (Version None)
Quarter: 2012Q2

REPORT INFORMATION
  Report Type: 
  Country: None (occurrence: None)
  Receive Date: 20120517
  Receipt Date: 20120508
  Transmission Date: 20120825
  Serious: Yes (Other)
  Sender: FDA-Public Use
  Company Number: US-ACTELION-A-NJ2012-65418

PATIENT

DRUGS (2)
  1. TRACLEER [Suspect]
     Dosage: 62.5 MG, BID
     Route: 048
     Dates: start: 20120317, end: 20120412
  2. TRACLEER [Suspect]
     Indication: PULMONARY ARTERIAL HYPERTENSION
     Dosage: 125 MG, BID
     Route: 048
     Dates: start: 20120413

REACTIONS (4)
  - HAEMOGLOBIN DECREASED [None]
  - ANAEMIA [None]
  - RED BLOOD CELL MORPHOLOGY ABNORMAL [None]
  - HAEMATOCRIT DECREASED [None]
